FAERS Safety Report 14897431 (Version 5)
Quarter: 2020Q2

REPORT INFORMATION
  Report Type: Spontaneous
  Country: US (occurrence: US)
  Receive Date: 20180515
  Receipt Date: 20200608
  Transmission Date: 20200713
  Serious: Yes (Other)
  Sender: FDA-Public Use
  Company Number: US-GLAXOSMITHKLINE-US2018GSK085226

PATIENT
  Sex: Female

DRUGS (2)
  1. ADVAIR DISKUS [Suspect]
     Active Substance: FLUTICASONE PROPIONATE\SALMETEROL XINAFOATE
     Indication: ASTHMA
     Dosage: UNK
     Dates: start: 2012
  2. INCRUSE ELLIPTA [Suspect]
     Active Substance: UMECLIDINIUM BROMIDE
     Indication: ASTHMA
     Dosage: UNK
     Dates: start: 2017

REACTIONS (6)
  - Neoplasm malignant [Unknown]
  - Laryngeal cancer [Unknown]
  - Throat irritation [Unknown]
  - Throat cancer [Unknown]
  - Product use in unapproved indication [Unknown]
  - Biopsy [Unknown]

NARRATIVE: CASE EVENT DATE: 2014
